FAERS Safety Report 17110522 (Version 2)
Quarter: 2019Q4

REPORT INFORMATION
  Report Type: Spontaneous
  Country: IR (occurrence: IR)
  Receive Date: 20191204
  Receipt Date: 20191205
  Transmission Date: 20200122
  Serious: Yes (Death, Other)
  Sender: FDA-Public Use
  Company Number: IR-SA-2019SA334354

PATIENT
  Age: 3 Year
  Sex: Female
  Weight: 10 kg

DRUGS (1)
  1. MYOZYME [Suspect]
     Active Substance: ALGLUCOSIDASE ALFA
     Dosage: 20 MG
     Dates: end: 20190816

REACTIONS (2)
  - Dysphagia [Fatal]
  - Respiratory failure [Fatal]
